FAERS Safety Report 7069642-1 (Version None)
Quarter: 2010Q4

REPORT INFORMATION
  Report Type: 
  Country: None (occurrence: None)
  Receive Date: 20101028
  Receipt Date: 20101025
  Transmission Date: 20110411
  Serious: Yes (Life-Threatening)
  Sender: FDA-Public Use
  Company Number: FR-B.I. PHARMACEUTICALS,INC./RIDGEFIELD-2010-FF-00854FF

PATIENT
  Sex: Male

DRUGS (5)
  1. TAMSULOSIN HCL [Suspect]
     Indication: PROSTATIC ADENOMA
     Dosage: 0.4 MG
     Route: 048
     Dates: end: 20100919
  2. ZYPREXA [Suspect]
     Indication: BIPOLAR I DISORDER
     Dosage: 10 MG
     Route: 048
     Dates: end: 20100919
  3. TEMESTA [Suspect]
     Indication: BIPOLAR I DISORDER
     Dosage: 2.5 MG
     Route: 048
     Dates: end: 20100919
  4. VASTAREL [Suspect]
     Dosage: 70 MG
     Route: 048
     Dates: start: 20100916, end: 20100919
  5. TANGANIL [Suspect]
     Dosage: 500 MG
     Route: 048
     Dates: end: 20100919

REACTIONS (14)
  - BLOOD CREATINE PHOSPHOKINASE INCREASED [None]
  - COMA [None]
  - HYPERCAPNIA [None]
  - HYPOGLYCAEMIA [None]
  - HYPOTHERMIA [None]
  - HYPOXIA [None]
  - LEUKOPENIA [None]
  - LYMPHOPENIA [None]
  - MYOGLOBIN BLOOD INCREASED [None]
  - PANCREATITIS [None]
  - RHABDOMYOLYSIS [None]
  - SINUS BRADYCARDIA [None]
  - SKIN DISCOLOURATION [None]
  - THROMBOCYTOPENIA [None]
